FAERS Safety Report 9016057 (Version 1)
Quarter: 2013Q1

REPORT INFORMATION
  Report Type: Spontaneous
  Country: JP (occurrence: JP)
  Receive Date: 20130116
  Receipt Date: 20130116
  Transmission Date: 20140127
  Serious: Yes (Other)
  Sender: FDA-Public Use
  Company Number: JP-TEVA-379608USA

PATIENT
  Sex: Female

DRUGS (1)
  1. TREANDA [Suspect]
     Route: 042

REACTIONS (2)
  - Drug eruption [Recovering/Resolving]
  - Arthralgia [Unknown]
